FAERS Safety Report 15772188 (Version 1)
Quarter: 2018Q4

REPORT INFORMATION
  Report Type: Spontaneous
  Country: TW (occurrence: TW)
  Receive Date: 20181228
  Receipt Date: 20181228
  Transmission Date: 20190205
  Serious: Yes (Other)
  Sender: FDA-Public Use
  Company Number: TW-SA-2018SA323902

PATIENT
  Age: 59 Year
  Sex: Female

DRUGS (1)
  1. PRALUENT [Suspect]
     Active Substance: ALIROCUMAB
     Dosage: 75 MG, QOW
     Route: 058
     Dates: start: 20181116

REACTIONS (5)
  - Musculoskeletal stiffness [Recovered/Resolved]
  - Abdominal pain [Not Recovered/Not Resolved]
  - Back pain [Not Recovered/Not Resolved]
  - Hepatitis [Not Recovered/Not Resolved]
  - Burnout syndrome [Recovered/Resolved]

NARRATIVE: CASE EVENT DATE: 2018
